FAERS Safety Report 4348453-1 (Version None)
Quarter: 2004Q2

REPORT INFORMATION
  Report Type: 
  Country: None (occurrence: None)
  Receive Date: 20040422
  Receipt Date: 20040405
  Transmission Date: 20050107
  Serious: Yes (Other)
  Sender: FDA-Public Use
  Company Number: DE_040413354

PATIENT
  Sex: Male
  Weight: 60 kg

DRUGS (2)
  1. ZYPREXA [Suspect]
     Indication: PSYCHOTIC DISORDER
     Dosage: 7.5 MG DAY
  2. LORAZEPAM [Concomitant]

REACTIONS (4)
  - CHOLELITHIASIS [None]
  - GYNAECOMASTIA [None]
  - NEPHROLITHIASIS [None]
  - WEIGHT INCREASED [None]
